FAERS Safety Report 9804748 (Version 2)
Quarter: 2014Q1

REPORT INFORMATION
  Report Type: Spontaneous
  Country: US (occurrence: US)
  Receive Date: 20140108
  Receipt Date: 20140113
  Transmission Date: 20141002
  Serious: Yes (Death)
  Sender: FDA-Public Use
  Company Number: US-PFIZER INC-2014005361

PATIENT
  Age: 40 Year
  Sex: Male

DRUGS (5)
  1. OXYCODONE HYDROCHLORIDE [Suspect]
  2. BUTALBITAL [Suspect]
  3. PROMETHAZINE [Suspect]
  4. CYCLOBENZAPRINE [Suspect]
  5. AMITRIPTYLINE [Suspect]

REACTIONS (1)
  - Intentional drug misuse [Fatal]
